FAERS Safety Report 13909005 (Version 1)
Quarter: 2017Q3

REPORT INFORMATION
  Report Type: Report from Study
  Country: DE (occurrence: DE)
  Receive Date: 20170828
  Receipt Date: 20170828
  Transmission Date: 20171127
  Serious: Yes (Hospitalization)
  Sender: FDA-Public Use
  Company Number: DE-ROCHE-1722910

PATIENT
  Age: 54 Year
  Sex: Female

DRUGS (2)
  1. METHOTREXATE (METHOTREXATE SODIUM) [Suspect]
     Active Substance: METHOTREXATE SODIUM
     Indication: RHEUMATOID ARTHRITIS
     Route: 065
  2. RITUXIMAB. [Suspect]
     Active Substance: RITUXIMAB
     Indication: RHEUMATOID ARTHRITIS
     Dosage: ON 12/AUG/2015, SHE RECEIVED HER MOST RECENT DOSE OF RITUXIMAB PRIOR TO SERIOUS ADVERSE EVENT.?NEXT
     Route: 042

REACTIONS (2)
  - Hip surgery [Recovered/Resolved]
  - Joint prosthesis user [Recovered/Resolved]

NARRATIVE: CASE EVENT DATE: 20160107
